FAERS Safety Report 4325814-8 (Version None)
Quarter: 2004Q1

REPORT INFORMATION
  Report Type: 
  Country: None (occurrence: None)
  Receive Date: 20040329
  Receipt Date: 20040309
  Transmission Date: 20041129
  Serious: Yes (Hospitalization)
  Sender: FDA-Public Use
  Company Number: FR-ROCHE-361262

PATIENT
  Age: 51 Year
  Sex: Male
  Weight: 65 kg

DRUGS (2)
  1. ROCEPHIN [Suspect]
     Route: 030
     Dates: start: 20030308, end: 20030308
  2. GENTALLINE [Suspect]
     Route: 042
     Dates: start: 20030308, end: 20030308

REACTIONS (4)
  - ANAPHYLACTIC SHOCK [None]
  - DYSPNOEA [None]
  - MALAISE [None]
  - URTICARIA [None]
